FAERS Safety Report 7370756-7 (Version None)
Quarter: 2011Q1

REPORT INFORMATION
  Report Type: 
  Country: None (occurrence: None)
  Receive Date: 20110323
  Receipt Date: 20110314
  Transmission Date: 20110831
  Serious: Yes (Life-Threatening, Hospitalization)
  Sender: FDA-Public Use
  Company Number: PL-BAYER-2011-022102

PATIENT
  Sex: Male
  Weight: 70 kg

DRUGS (1)
  1. ULTRAVIST 150 [Suspect]
     Indication: ARTERIOGRAM CORONARY
     Dosage: 50 ML, ONCE
     Route: 013
     Dates: start: 20110310, end: 20110310

REACTIONS (5)
  - BLOOD PRESSURE INCREASED [None]
  - INCOHERENT [None]
  - HEADACHE [None]
  - PSYCHOMOTOR HYPERACTIVITY [None]
  - METAMORPHOPSIA [None]
